FAERS Safety Report 25143521 (Version 1)
Quarter: 2025Q2

REPORT INFORMATION
  Report Type: Spontaneous
  Country: US (occurrence: US)
  Receive Date: 20250401
  Receipt Date: 20250401
  Transmission Date: 20250717
  Serious: No
  Sender: TRIS PHARM
  Company Number: US-TRIS PHARMA, INC.-25US011895

PATIENT

DRUGS (2)
  1. RISPERIDONE [Suspect]
     Active Substance: RISPERIDONE
     Indication: Antipsychotic therapy
     Dosage: 1 MILLILITRE, BEDTIME (AT NIGHT)
     Route: 048
     Dates: start: 20250320
  2. RISPERIDONE [Suspect]
     Active Substance: RISPERIDONE
     Dosage: 1 MILLILITRE, BEDTIME (AT NIGHT)
     Route: 048
     Dates: end: 2025

REACTIONS (1)
  - Vomiting projectile [Recovered/Resolved]
